FAERS Safety Report 5118800-1 (Version None)
Quarter: 2006Q3

REPORT INFORMATION
  Report Type: 
  Country: None (occurrence: None)
  Receive Date: 20060927
  Receipt Date: 20060914
  Transmission Date: 20061208
  Serious: Yes (Hospitalization)
  Sender: FDA-Public Use
  Company Number: DSA_81688_2006

PATIENT
  Age: 32 Year
  Sex: Female
  Weight: 53.5244 kg

DRUGS (19)
  1. XYREM [Suspect]
     Indication: CATAPLEXY
     Dosage: 4.5 G TWICE NIGHTLY PO
     Route: 048
     Dates: start: 20040101, end: 20040901
  2. XYREM [Suspect]
     Indication: NARCOLEPSY
     Dosage: 4.5 G TWICE NIGHTLY PO
     Route: 048
     Dates: start: 20040101, end: 20040901
  3. XYREM [Suspect]
     Indication: CATAPLEXY
     Dosage: DF PO
     Route: 048
     Dates: start: 20040318, end: 20040101
  4. XYREM [Suspect]
     Indication: NARCOLEPSY
     Dosage: DF PO
     Route: 048
     Dates: start: 20040318, end: 20040101
  5. XYREM [Suspect]
     Indication: CATAPLEXY
     Dosage: DF PO
     Route: 048
     Dates: start: 20040901
  6. XYREM [Suspect]
     Indication: NARCOLEPSY
     Dosage: DF PO
     Route: 048
     Dates: start: 20040901
  7. XYREM [Suspect]
     Indication: CATAPLEXY
     Dosage: 4.5 G TWICE NIGHTLY PO
     Route: 048
  8. XYREM [Suspect]
     Indication: NARCOLEPSY
     Dosage: 4.5 G TWICE NIGHTLY PO
     Route: 048
  9. FLONASE [Concomitant]
  10. PROVIGIL [Concomitant]
  11. NEURONTIN [Concomitant]
  12. MIRAPEX [Concomitant]
  13. NEXIUM [Concomitant]
  14. CYMBALTA [Concomitant]
  15. SYNTHROID [Concomitant]
  16. VITAMIN E [Concomitant]
  17. TOPAMAX [Concomitant]
  18. IMITREX /01044801/ [Concomitant]
  19. BIRTH CONTROL PILLS [Concomitant]

REACTIONS (4)
  - PHYSICAL ASSAULT [None]
  - SKULL FRACTURE [None]
  - SUBDURAL HAEMATOMA [None]
  - TRAUMATIC BRAIN INJURY [None]
